FAERS Safety Report 9397885 (Version 1)
Quarter: 2013Q3

REPORT INFORMATION
  Report Type: Spontaneous
  Country: BR (occurrence: BR)
  Receive Date: 20130712
  Receipt Date: 20130712
  Transmission Date: 20140515
  Serious: Yes (Other)
  Sender: FDA-Public Use
  Company Number: BR-PFIZER INC-2013203748

PATIENT
  Age: 65 Year
  Sex: Female

DRUGS (1)
  1. CITALOR [Suspect]
     Dosage: UNK
     Dates: start: 2008

REACTIONS (1)
  - Eye disorder [Unknown]
